FAERS Safety Report 15651566 (Version 2)
Quarter: 2018Q4

REPORT INFORMATION
  Report Type: Spontaneous
  Country: ES (occurrence: ES)
  Receive Date: 20181123
  Receipt Date: 20181219
  Transmission Date: 20190205
  Serious: Yes (Hospitalization)
  Sender: FDA-Public Use
  Company Number: ES-NAPPMUNDI-GBR-2018-0061806

PATIENT
  Age: 81 Year
  Sex: Female

DRUGS (2)
  1. BUPRENORPHINE. [Suspect]
     Active Substance: BUPRENORPHINE
     Indication: BACK PAIN
     Dosage: 140 MCG, Q3D
     Route: 062
  2. FENTANYL. [Suspect]
     Active Substance: FENTANYL
     Indication: BACK PAIN
     Dosage: 4800 MCG, DAILY (4800 MICROGRAM DAILY; TRASMUCOSAL 4-5 TIMER PER DAY)
     Route: 050

REACTIONS (3)
  - Hyperaesthesia [Recovered/Resolved]
  - Poor quality sleep [Unknown]
  - Product use in unapproved indication [Unknown]
